FAERS Safety Report 20597754 (Version 2)
Quarter: 2022Q1

REPORT INFORMATION
  Report Type: Spontaneous
  Country: US (occurrence: None)
  Receive Date: 20220315
  Receipt Date: 20220315
  Transmission Date: 20220424
  Serious: No
  Sender: FDA-Public Use
  Company Number: US-ROCHE-2931243

PATIENT
  Sex: Female
  Weight: 61.744 kg

DRUGS (10)
  1. XOLAIR [Suspect]
     Active Substance: OMALIZUMAB
     Indication: Urticaria
     Dosage: 1 (150 MG) SHOT EACH ARM EVERY 4 WEEKS ;ONGOING: YES
     Route: 058
     Dates: start: 2021
  2. XOLAIR [Suspect]
     Active Substance: OMALIZUMAB
  3. XOLAIR [Suspect]
     Active Substance: OMALIZUMAB
  4. XOLAIR [Suspect]
     Active Substance: OMALIZUMAB
     Dosage: 1 (150 MG) SHOT EACH ARM EVERY 4 WEEKS ;ONGOING: NO
     Route: 058
     Dates: start: 2017, end: 2018
  5. XOLAIR [Suspect]
     Active Substance: OMALIZUMAB
  6. XOLAIR [Suspect]
     Active Substance: OMALIZUMAB
  7. LORATADINE [Concomitant]
     Active Substance: LORATADINE
     Indication: Urticaria
     Route: 048
     Dates: start: 2021
  8. ALLEGRA [Concomitant]
     Active Substance: FEXOFENADINE HYDROCHLORIDE
     Indication: Urticaria
     Route: 048
     Dates: start: 2021
  9. TOPIRAMATE [Concomitant]
     Active Substance: TOPIRAMATE
     Indication: Mood swings
     Dosage: (2) 25 MG TABLETS TWICE DAILY
     Route: 048
     Dates: start: 202107
  10. ADDERALL [Concomitant]
     Active Substance: AMPHETAMINE ASPARTATE\AMPHETAMINE SULFATE\DEXTROAMPHETAMINE SACCHARATE\DEXTROAMPHETAMINE SULFATE
     Indication: Attention deficit hyperactivity disorder
     Dosage: EVERY 4 HOURS AS NEEDED
     Route: 048
     Dates: start: 202108

REACTIONS (4)
  - Urticaria [Recovered/Resolved]
  - Disturbance in attention [Recovered/Resolved]
  - Product quality issue [Unknown]
  - Needle issue [Unknown]

NARRATIVE: CASE EVENT DATE: 20210101
